FAERS Safety Report 10072140 (Version 3)
Quarter: 2014Q3

REPORT INFORMATION
  Report Type: Spontaneous
  Country: BE (occurrence: BE)
  Receive Date: 20140411
  Receipt Date: 20140702
  Transmission Date: 20150326
  Serious: Yes (Other)
  Sender: FDA-Public Use
  Company Number: BE-ASTRAZENECA-2014SE24367

PATIENT
  Age: 27839 Day
  Sex: Male

DRUGS (26)
  1. IBUPROFEN. [Suspect]
     Active Substance: IBUPROFEN
     Route: 065
     Dates: end: 20140319
  2. ZESTORETIC [Concomitant]
     Active Substance: HYDROCHLOROTHIAZIDE\LISINOPRIL
     Indication: HYPERTENSION
     Dosage: 20-12.5 MG, 1 DF DAILY
     Route: 048
     Dates: start: 201308
  3. MYSOLINE [Concomitant]
     Active Substance: PRIMIDONE
     Dates: start: 201308
  4. PANTOMED [Concomitant]
     Active Substance: DEXPANTHENOL
     Dates: start: 201308
  5. JANUVIA [Suspect]
     Active Substance: SITAGLIPTIN PHOSPHATE
     Indication: DIABETES MELLITUS
     Route: 065
     Dates: end: 2014
  6. EMCONCOR MITIS [Concomitant]
     Indication: HYPERTENSION
     Dates: start: 201308
  7. FLUNITRAZEPAM [Concomitant]
     Active Substance: FLUNITRAZEPAM
     Dates: start: 201308
  8. UNI DIAMICRON [Concomitant]
     Active Substance: GLICLAZIDE
     Dates: start: 201308
  9. BUPRENORPHINE HCL [Concomitant]
     Active Substance: BUPRENORPHINE HYDROCHLORIDE
     Dates: start: 201308
  10. ALPRAZOLAM. [Concomitant]
     Active Substance: ALPRAZOLAM
  11. METFORMINE (NON AZ PRODUCT) [Suspect]
     Active Substance: METFORMIN HYDROCHLORIDE
     Indication: DIABETES MELLITUS
     Route: 065
     Dates: start: 201308, end: 20140319
  12. METFORMINE (NON AZ PRODUCT) [Suspect]
     Active Substance: METFORMIN HYDROCHLORIDE
     Indication: DIABETES MELLITUS
     Route: 065
     Dates: end: 2014
  13. FLUOXETINE EG [Concomitant]
     Dates: start: 201308
  14. FENOFIBRATE. [Suspect]
     Active Substance: FENOFIBRATE
     Route: 065
     Dates: start: 20131122, end: 20140319
  15. ASAFLOW [Concomitant]
     Active Substance: ASPIRIN
     Dates: start: 201308
  16. CORUNO [Concomitant]
     Active Substance: MOLSIDOMINE
     Dates: start: 201308
  17. EFFEXOR XR [Concomitant]
     Active Substance: VENLAFAXINE HYDROCHLORIDE
     Dates: start: 201308
  18. BUPRENORPHINE HCL [Concomitant]
     Active Substance: BUPRENORPHINE HYDROCHLORIDE
     Dosage: STICKING PLASTER 52,5 MCG/HOUR, MONDAY MORNING AND REPLACE ON THURSDAY EVENING
  19. ALLOPURINOL. [Concomitant]
     Active Substance: ALLOPURINOL
  20. GLUCOPHAGE [Concomitant]
     Active Substance: METFORMIN HYDROCHLORIDE
     Dates: end: 20140319
  21. CRESTOR [Concomitant]
     Active Substance: ROSUVASTATIN CALCIUM
     Route: 048
     Dates: start: 201308
  22. AMLODIPINE EG [Concomitant]
     Active Substance: AMLODIPINE BESYLATE
     Indication: HYPERTENSION
     Dates: start: 201308
  23. TRAZODONE [Concomitant]
     Active Substance: TRAZODONE HYDROCHLORIDE
     Dosage: 0.5 TABLET, 100 MG DAILY
     Dates: start: 201308
  24. BRILIQUE [Suspect]
     Active Substance: TICAGRELOR
     Indication: ACUTE MYOCARDIAL INFARCTION
     Route: 048
     Dates: start: 201308, end: 20140319
  25. EFFEXOR XR [Concomitant]
     Active Substance: VENLAFAXINE HYDROCHLORIDE
     Dates: start: 201308
  26. REMERGON [Concomitant]
     Active Substance: MIRTAZAPINE
     Dates: start: 201308

REACTIONS (4)
  - Renal impairment [Recovered/Resolved]
  - Creatinine renal clearance decreased [Recovered/Resolved]
  - Decreased appetite [Unknown]
  - Gastric ulcer [Unknown]

NARRATIVE: CASE EVENT DATE: 20140319
